FAERS Safety Report 7938958-6 (Version None)
Quarter: 2011Q4

REPORT INFORMATION
  Report Type: 
  Country: None (occurrence: None)
  Receive Date: 20111124
  Receipt Date: 20111122
  Transmission Date: 20120403
  Serious: No
  Sender: FDA-Public Use
  Company Number: US-PFIZER INC-2011286336

PATIENT
  Sex: Female
  Weight: 69.841 kg

DRUGS (3)
  1. LIPITOR [Suspect]
     Indication: LOW DENSITY LIPOPROTEIN INCREASED
  2. LIPITOR [Suspect]
     Indication: HIGH DENSITY LIPOPROTEIN DECREASED
  3. LIPITOR [Suspect]
     Indication: HYPERLIPIDAEMIA
     Dosage: UNK, DAILY
     Route: 048
     Dates: start: 19850101

REACTIONS (2)
  - HYPERTENSION [None]
  - RENAL DISORDER [None]
